FAERS Safety Report 21278940 (Version 2)
Quarter: 2022Q3

REPORT INFORMATION
  Report Type: Report from Study
  Country: US (occurrence: US)
  Receive Date: 20220901
  Receipt Date: 20220903
  Transmission Date: 20221027
  Serious: No
  Sender: FDA-Public Use
  Company Number: US-NOVARTISTESTPH-NVSC2022US196069

PATIENT
  Sex: Male

DRUGS (2)
  1. MEKINIST [Suspect]
     Active Substance: TRAMETINIB DIMETHYL SULFOXIDE
     Indication: Product used for unknown indication
     Dosage: 2 MG, QD
     Route: 048
     Dates: start: 20220706, end: 20220830
  2. TAFINLAR [Suspect]
     Active Substance: DABRAFENIB MESYLATE
     Indication: Product used for unknown indication
     Dosage: 75 MG, BID, (TAKE TWO CAPSULES BY MOUTH TWICE DAILY)
     Route: 048
     Dates: start: 20220706, end: 20220830

REACTIONS (4)
  - Adverse drug reaction [Unknown]
  - Pyrexia [Unknown]
  - Nausea [Unknown]
  - Decreased appetite [Unknown]
